FAERS Safety Report 7924552-X (Version None)
Quarter: 2011Q4

REPORT INFORMATION
  Report Type: 
  Country: None (occurrence: None)
  Receive Date: 20111117
  Receipt Date: 20041109
  Transmission Date: 20120403
  Serious: Yes (Hospitalization)
  Sender: FDA-Public Use
  Company Number: PHHY2004FI005105

PATIENT
  Sex: Male

DRUGS (4)
  1. EXELON [Suspect]
     Indication: DEMENTIA ALZHEIMER'S TYPE
     Dosage: 12 MG, QD
     Dates: start: 20030606
  2. DIUREX /ARG/ [Concomitant]
     Route: 048
     Dates: start: 20040628
  3. OXEPAM [Concomitant]
     Dosage: 15 MG, UNK
     Route: 048
     Dates: start: 20010913
  4. MEMANTINE HYDROCHLORIDE [Concomitant]
     Indication: DEMENTIA ALZHEIMER'S TYPE
     Dosage: 20 MG, QD
     Route: 048
     Dates: start: 20040421

REACTIONS (1)
  - PNEUMONIA [None]
